FAERS Safety Report 25549829 (Version 1)
Quarter: 2025Q3

REPORT INFORMATION
  Report Type: Spontaneous
  Country: US (occurrence: US)
  Receive Date: 20250714
  Receipt Date: 20250714
  Transmission Date: 20251020
  Serious: No
  Sender: NOVO NORDISK
  Company Number: US-NOVOPROD-1399750

PATIENT
  Age: 55 Year
  Sex: Female
  Weight: 237 kg

DRUGS (2)
  1. SEMAGLUTIDE [Suspect]
     Active Substance: SEMAGLUTIDE
     Dates: start: 202310, end: 202311
  2. SEMAGLUTIDE [Suspect]
     Active Substance: SEMAGLUTIDE
     Indication: Obesity
     Dates: start: 202309, end: 202310

REACTIONS (4)
  - Pain [Unknown]
  - Weight increased [Unknown]
  - Increased appetite [Unknown]
  - Counterfeit product administered [Unknown]
